FAERS Safety Report 12211485 (Version 1)
Quarter: 2016Q1

REPORT INFORMATION
  Report Type: Spontaneous
  Country: US (occurrence: US)
  Receive Date: 20160325
  Receipt Date: 20160325
  Transmission Date: 20160526
  Serious: No
  Sender: FDA-Public Use
  Company Number: US-KERYX BIOPHARMACEUTICALS, INC.-2016US001610

PATIENT
  Age: 65 Year
  Sex: Female

DRUGS (1)
  1. AURYXIA [Suspect]
     Active Substance: TETRAFERRIC TRICITRATE DECAHYDRATE
     Indication: BLOOD PHOSPHORUS INCREASED
     Dosage: 1 TAB, TID WITH MEALS
     Route: 048
     Dates: start: 20160111, end: 20160117

REACTIONS (1)
  - Constipation [Unknown]

NARRATIVE: CASE EVENT DATE: 20160111
